FAERS Safety Report 18171299 (Version 1)
Quarter: 2020Q3

REPORT INFORMATION
  Report Type: Report from Study
  Country: AR (occurrence: AR)
  Receive Date: 20200819
  Receipt Date: 20200819
  Transmission Date: 20201103
  Serious: Yes (Hospitalization, Other)
  Sender: FDA-Public Use
  Company Number: NVSC2020AR227927

PATIENT
  Age: 45 Year
  Sex: Male

DRUGS (3)
  1. SANDOSTATIN LAR DEPOT [Suspect]
     Active Substance: OCTREOTIDE ACETATE
  2. SANDOSTATIN LAR DEPOT [Suspect]
     Active Substance: OCTREOTIDE ACETATE
     Indication: NEUROENDOCRINE TUMOUR
     Dosage: UNK
     Route: 065
     Dates: start: 2018
  3. SANDOSTATIN LAR DEPOT [Suspect]
     Active Substance: OCTREOTIDE ACETATE

REACTIONS (12)
  - Intestinal obstruction [Unknown]
  - Peritonitis [Unknown]
  - Thrombosis [Unknown]
  - Malignant mesenteric neoplasm [Unknown]
  - Metastases to liver [Unknown]
  - Shock hypoglycaemic [Unknown]
  - Chronic kidney disease [Unknown]
  - Small intestine carcinoma [Unknown]
  - Internal haemorrhage [Unknown]
  - Large intestine perforation [Unknown]
  - Intestinal perforation [Unknown]
  - Metastases to peritoneum [Unknown]

NARRATIVE: CASE EVENT DATE: 20180125
